FAERS Safety Report 8510953-8 (Version None)
Quarter: 2012Q3

REPORT INFORMATION
  Report Type: 
  Country: None (occurrence: None)
  Receive Date: 20120716
  Receipt Date: 20120705
  Transmission Date: 20120928
  Serious: No
  Sender: FDA-Public Use
  Company Number: US-JNJFOC-20120519945

PATIENT
  Sex: Female
  Weight: 56.7 kg

DRUGS (5)
  1. DURAGESIC-100 [Suspect]
     Indication: PAIN IN EXTREMITY
     Route: 062
     Dates: start: 20120201
  2. DURAGESIC-100 [Suspect]
     Indication: PAIN
     Route: 062
     Dates: start: 20120201
  3. DURAGESIC-100 [Suspect]
     Indication: BACK PAIN
     Route: 062
     Dates: start: 20120201
  4. DURAGESIC-100 [Suspect]
     Indication: SCIATICA
     Route: 062
     Dates: start: 20120201
  5. OXYCODONE HCL [Concomitant]
     Indication: PAIN
     Route: 048
     Dates: start: 20110101

REACTIONS (17)
  - ABASIA [None]
  - WRONG TECHNIQUE IN DRUG USAGE PROCESS [None]
  - BACK PAIN [None]
  - PAIN [None]
  - APPLICATION SITE ERYTHEMA [None]
  - ANXIETY [None]
  - INAPPROPRIATE SCHEDULE OF DRUG ADMINISTRATION [None]
  - KYPHOSIS [None]
  - POOR QUALITY DRUG ADMINISTERED [None]
  - NERVOUSNESS [None]
  - DRUG ADMINISTERED AT INAPPROPRIATE SITE [None]
  - HYPERHIDROSIS [None]
  - BEDRIDDEN [None]
  - PAIN IN EXTREMITY [None]
  - DISCOMFORT [None]
  - PRODUCT QUALITY ISSUE [None]
  - APPLICATION SITE REACTION [None]
